FAERS Safety Report 4684268-2 (Version None)
Quarter: 2005Q2

REPORT INFORMATION
  Report Type: 
  Country: None (occurrence: None)
  Receive Date: 20050531
  Receipt Date: 20050404
  Transmission Date: 20051028
  Serious: Yes (Hospitalization)
  Sender: FDA-Public Use
  Company Number: US_0411107691

PATIENT
  Age: 25 Year
  Sex: Male
  Weight: 123 kg

DRUGS (1)
  1. ZYPREXA [Suspect]
     Dosage: 20 MG
     Dates: start: 19990101, end: 20010101

REACTIONS (3)
  - DIABETES MELLITUS [None]
  - POLYDIPSIA [None]
  - POLYURIA [None]
